FAERS Safety Report 6578607-5 (Version None)
Quarter: 2010Q1

REPORT INFORMATION
  Report Type: 
  Country: None (occurrence: None)
  Receive Date: 20100211
  Receipt Date: 20100203
  Transmission Date: 20100710
  Serious: Yes (Other)
  Sender: FDA-Public Use
  Company Number: US-ABBOTT-10P-163-0624023-00

PATIENT
  Sex: Female
  Weight: 70.824 kg

DRUGS (12)
  1. HUMIRA [Suspect]
     Indication: CROHN'S DISEASE
     Dosage: 160 MG LOADING DOSE
     Dates: start: 20091219, end: 20091219
  2. HUMIRA [Suspect]
     Dosage: 80 MG LOADING DOSE
  3. HUMIRA [Suspect]
  4. PENTASA [Concomitant]
     Indication: DRUG USE FOR UNKNOWN INDICATION
     Route: 048
  5. ZEGERID [Concomitant]
     Indication: DRUG USE FOR UNKNOWN INDICATION
  6. ACIPHEX [Concomitant]
     Indication: DRUG USE FOR UNKNOWN INDICATION
  7. CELEBREX [Concomitant]
     Indication: DRUG USE FOR UNKNOWN INDICATION
  8. TOPIRAMATE [Concomitant]
     Indication: DRUG USE FOR UNKNOWN INDICATION
  9. RISPERIDONE [Concomitant]
     Indication: DRUG USE FOR UNKNOWN INDICATION
  10. LEVOTHYROXINE SODIUM [Concomitant]
     Indication: DRUG USE FOR UNKNOWN INDICATION
  11. M.V.I. [Concomitant]
     Indication: DRUG USE FOR UNKNOWN INDICATION
  12. LITHIUM CARBONATE [Concomitant]
     Indication: DRUG USE FOR UNKNOWN INDICATION
     Route: 048

REACTIONS (2)
  - COUGH [None]
  - GASTRIC POLYPS [None]
